FAERS Safety Report 6763723-5 (Version None)
Quarter: 2010Q2

REPORT INFORMATION
  Report Type: 
  Country: None (occurrence: None)
  Receive Date: 20100610
  Receipt Date: 20100608
  Transmission Date: 20101027
  Serious: Yes (Death)
  Sender: FDA-Public Use
  Company Number: US-GILEAD-2010-0029669

PATIENT
  Sex: Male

DRUGS (19)
  1. LETAIRIS [Suspect]
     Indication: PULMONARY ARTERIAL HYPERTENSION
     Route: 048
     Dates: start: 20100219
  2. REVATIO [Concomitant]
  3. TASPRIN [Concomitant]
  4. FUROSEMIDE [Concomitant]
  5. DILTIAZEM 24HR [Concomitant]
  6. NIASPAN [Concomitant]
  7. CEPHALEXIN [Concomitant]
  8. AMOXICILLIN AND CLAVULANATE POTASSIUM [Concomitant]
  9. FLONASE [Concomitant]
  10. PULMICORT [Concomitant]
  11. SPIRIVA [Concomitant]
  12. XOPENEX [Concomitant]
  13. MUCINEX [Concomitant]
  14. RANEXA [Concomitant]
  15. BROVANA [Concomitant]
  16. PREDNISONE [Concomitant]
  17. PERCOCET [Concomitant]
  18. L-LYSINE [Concomitant]
  19. LEVAQUIN [Concomitant]

REACTIONS (1)
  - DEATH [None]
